FAERS Safety Report 11761883 (Version 1)
Quarter: 2015Q4

REPORT INFORMATION
  Report Type: Spontaneous
  Country: US (occurrence: US)
  Receive Date: 20151120
  Receipt Date: 20151120
  Transmission Date: 20160304
  Serious: Yes (Other)
  Sender: FDA-Public Use
  Company Number: US-ELI_LILLY_AND_COMPANY-US201511006181

PATIENT
  Age: 34 Year
  Sex: Female
  Weight: 112.93 kg

DRUGS (1)
  1. HUMALOG [Suspect]
     Active Substance: INSULIN LISPRO
     Indication: PRODUCT USED FOR UNKNOWN INDICATION
     Route: 058

REACTIONS (6)
  - Maternal exposure during pregnancy [Not Recovered/Not Resolved]
  - Lung disorder [Unknown]
  - Tremor [Unknown]
  - Blood glucose decreased [Not Recovered/Not Resolved]
  - Anxiety [Unknown]
  - Regurgitation [Unknown]

NARRATIVE: CASE EVENT DATE: 20151022
